FAERS Safety Report 4511707-X (Version None)
Quarter: 2004Q4

REPORT INFORMATION
  Report Type: 
  Country: None (occurrence: None)
  Receive Date: 20041123
  Receipt Date: 20041123
  Transmission Date: 20050328
  Serious: Yes (Other)
  Sender: FDA-Public Use
  Company Number: None

PATIENT
  Age: 55 Year
  Sex: Male
  Weight: 116.1 kg

DRUGS (4)
  1. SIMVASTATIN [Suspect]
  2. CLOPIDOGREL BISULFATE [Concomitant]
  3. HYDROCHLOROTHIAZIDE [Concomitant]
  4. LISINOPRIL [Concomitant]

REACTIONS (2)
  - ARTHRALGIA [None]
  - MYALGIA [None]
